FAERS Safety Report 23150555 (Version 1)
Quarter: 2023Q4

REPORT INFORMATION
  Report Type: Spontaneous
  Country: US (occurrence: None)
  Receive Date: 20231103
  Receipt Date: 20231103
  Transmission Date: 20240109
  Serious: No
  Sender: FDA-Public Use
  Company Number: None

PATIENT
  Sex: Female

DRUGS (1)
  1. STELARA [Suspect]
     Active Substance: USTEKINUMAB
     Indication: Crohn^s disease
     Dosage: OTHER QUANTITY : 90/1 MG/ML;?OTHER FREQUENCY : EVERY 8 WEEKS;?
     Route: 058
     Dates: start: 202201

REACTIONS (3)
  - Drug ineffective [None]
  - Insurance issue [None]
  - Inappropriate schedule of product administration [None]
